FAERS Safety Report 25773588 (Version 1)
Quarter: 2025Q3

REPORT INFORMATION
  Report Type: Spontaneous
  Country: US (occurrence: None)
  Receive Date: 20250908
  Receipt Date: 20250908
  Transmission Date: 20251020
  Serious: Yes (Hospitalization)
  Sender: FDA-CTU
  Company Number: None

PATIENT
  Sex: Male

DRUGS (10)
  1. DASATINIB [Suspect]
     Active Substance: DASATINIB
     Indication: Acute lymphocytic leukaemia
     Route: 048
     Dates: start: 20241217
  2. ACETAMIN TAB 500MG [Concomitant]
  3. ADDERALL TAB 5MG [Concomitant]
  4. ADDERALL XR CAP 20MG [Concomitant]
  5. ALPRAZOLAM TAB 0.5MG [Concomitant]
  6. DASATINIB [Concomitant]
     Active Substance: DASATINIB
  7. DEXAMETHASONE [Concomitant]
     Active Substance: DEXAMETHASONE
  8. ESCITALOPRAM [Concomitant]
     Active Substance: ESCITALOPRAM OXALATE
  9. HYDROCHLOROT TAB 25MG [Concomitant]
  10. LISINOP/HCTZ TAB 20-12.5 [Concomitant]

REACTIONS (2)
  - Febrile neutropenia [None]
  - Neutropenia [None]
